FAERS Safety Report 20064641 (Version 2)
Quarter: 2021Q4

REPORT INFORMATION
  Report Type: Spontaneous
  Country: US (occurrence: US)
  Receive Date: 20211112
  Receipt Date: 20211118
  Transmission Date: 20220303
  Serious: No
  Sender: FDA-Public Use
  Company Number: US-PFIZER INC-202101367919

PATIENT
  Sex: Female

DRUGS (1)
  1. PREMARIN [Suspect]
     Active Substance: ESTROGENS, CONJUGATED
     Indication: Burning sensation
     Dosage: UNK (2 WEEKS ONCE EVERY OTHER NIGHT)

REACTIONS (4)
  - Crying [Unknown]
  - Illness [Unknown]
  - Pain [Unknown]
  - Off label use [Unknown]
